FAERS Safety Report 5521740-7 (Version None)
Quarter: 2007Q4

REPORT INFORMATION
  Report Type: 
  Country: None (occurrence: None)
  Receive Date: 20071120
  Receipt Date: 20071105
  Transmission Date: 20080405
  Serious: Yes (Other)
  Sender: FDA-Public Use
  Company Number: TR-ELI_LILLY_AND_COMPANY-TR200711002158

PATIENT
  Age: 52 Year
  Sex: Male
  Weight: 85 kg

DRUGS (2)
  1. HUMALOG MIX 75/25 [Suspect]
     Dosage: 8 U, EACH MORNING
     Route: 058
     Dates: start: 20030101, end: 20070927
  2. HUMALOG MIX 75/25 [Suspect]
     Dosage: 14 U, EACH EVENING
     Route: 058
     Dates: start: 20030101, end: 20070927

REACTIONS (2)
  - BLOOD UREA INCREASED [None]
  - KIDNEY INFECTION [None]
